FAERS Safety Report 10175989 (Version 1)
Quarter: 2014Q2

REPORT INFORMATION
  Report Type: Spontaneous
  Country: US (occurrence: None)
  Receive Date: 20140515
  Receipt Date: 20140515
  Transmission Date: 20141212
  Serious: No
  Sender: FDA-Public Use
  Company Number: None

PATIENT
  Age: 92 Year
  Sex: Male

DRUGS (8)
  1. IMBRUVICA 140 MG PHARMACYCLICS [Suspect]
     Indication: PRODUCT USED FOR UNKNOWN INDICATION
     Dosage: 280MG/ODD DAYS, 420MG/EVEN DAYS?DAILY?ORAL
     Route: 048
     Dates: start: 20140115
  2. LEVOTHYROXINE [Concomitant]
  3. AVODART [Concomitant]
  4. MULTIVITAMIN [Concomitant]
  5. VITAMIN C [Concomitant]
  6. VITAMIN D [Concomitant]
  7. VITAMIN B12 [Concomitant]
  8. IBUPROFEN [Concomitant]

REACTIONS (1)
  - Joint swelling [None]
